FAERS Safety Report 11401025 (Version 1)
Quarter: 2015Q3

REPORT INFORMATION
  Report Type: Spontaneous
  Country: CO (occurrence: CO)
  Receive Date: 20150820
  Receipt Date: 20150820
  Transmission Date: 20151125
  Serious: Yes (Other)
  Sender: FDA-Public Use
  Company Number: CO-TAKEDA-2015MPI003674

PATIENT

DRUGS (1)
  1. VELCADE [Suspect]
     Active Substance: BORTEZOMIB
     Indication: PLASMA CELL MYELOMA
     Dosage: 3.5 MG, UNK
     Route: 058
     Dates: start: 20110523

REACTIONS (1)
  - Chikungunya virus infection [Recovered/Resolved]

NARRATIVE: CASE EVENT DATE: 20150427
